FAERS Safety Report 9307012 (Version 2)
Quarter: 2013Q3

REPORT INFORMATION
  Report Type: Spontaneous
  Country: CA (occurrence: CA)
  Receive Date: 20130523
  Receipt Date: 20130703
  Transmission Date: 20140515
  Serious: Yes (Other)
  Sender: FDA-Public Use
  Company Number: CA-009507513-1305CAN013104

PATIENT
  Sex: Female

DRUGS (1)
  1. AERIUS [Suspect]
     Indication: SEASONAL ALLERGY

REACTIONS (2)
  - Myocardial infarction [Recovered/Resolved]
  - Presyncope [Recovered/Resolved]
